FAERS Safety Report 14965906 (Version 2)
Quarter: 2018Q2

REPORT INFORMATION
  Report Type: Spontaneous
  Country: US (occurrence: US)
  Receive Date: 20180602
  Receipt Date: 20180611
  Transmission Date: 20180711
  Serious: No
  Sender: FDA-Public Use
  Company Number: PHEH2018US021498

PATIENT
  Sex: Female

DRUGS (2)
  1. VOTRIENT [Suspect]
     Active Substance: PAZOPANIB HYDROCHLORIDE
     Indication: RENAL CANCER
     Dosage: 4 DF, QD
     Route: 048
     Dates: start: 20180410
  2. VOTRIENT [Suspect]
     Active Substance: PAZOPANIB HYDROCHLORIDE
     Dosage: 2 DF, QD
     Route: 048

REACTIONS (4)
  - Dysgeusia [Unknown]
  - Tendonitis [Unknown]
  - Hypertension [Unknown]
  - Headache [Unknown]
